FAERS Safety Report 16886059 (Version 4)
Quarter: 2023Q4

REPORT INFORMATION
  Report Type: Report from Study
  Country: ES (occurrence: ES)
  Receive Date: 20191004
  Receipt Date: 20231122
  Transmission Date: 20240110
  Serious: Yes (Other)
  Sender: FDA-Public Use
  Company Number: ES-PFIZER INC-2019416609

PATIENT
  Age: 59 Year
  Sex: Male
  Weight: 68.5 kg

DRUGS (11)
  1. GLASDEGIB [Interacting]
     Active Substance: GLASDEGIB
     Indication: Chronic graft versus host disease
     Dosage: 50 MG, 1X/DAY (QD)
     Route: 048
     Dates: start: 20190806, end: 20190918
  2. ACITRETIN [Interacting]
     Active Substance: ACITRETIN
     Indication: Chronic graft versus host disease
     Dosage: UNK
     Route: 048
     Dates: start: 20181217, end: 20190924
  3. VITAMIN B COMPLEX [Concomitant]
     Active Substance: CYANOCOBALAMIN\DEXPANTHENOL\NIACINAMIDE\PYRIDOXINE HYDROCHLORIDE\RIBOFLAVIN 5^-PHOSPHATE SODIUM\THIA
     Indication: Muscle spasms
     Dosage: UNK
     Route: 048
     Dates: start: 20190917
  4. MYCOSTATIN [Concomitant]
     Active Substance: NYSTATIN
     Indication: Prophylaxis
     Dosage: ROUTE REPORTED AS ^RINSES/ORAL^
     Route: 048
     Dates: start: 20190917
  5. PREDNISONE [Concomitant]
     Active Substance: PREDNISONE
     Indication: Graft versus host disease
     Dosage: 10 MG, UNK
     Route: 048
     Dates: start: 201602
  6. AZITHROMYCIN [Concomitant]
     Active Substance: AZITHROMYCIN
     Indication: Prophylaxis
     Dosage: 250
     Route: 048
     Dates: start: 201905
  7. MONTELUKAST [Concomitant]
     Active Substance: MONTELUKAST SODIUM
     Indication: Prophylaxis
     Dosage: UNK
     Route: 048
     Dates: start: 20190121
  8. BACLOFEN [Concomitant]
     Active Substance: BACLOFEN
     Indication: Muscle spasms
     Dosage: UNK
     Route: 048
     Dates: start: 20190827
  9. ACYCLOVIR [Concomitant]
     Active Substance: ACYCLOVIR
     Indication: Prophylaxis
     Dosage: UNK
     Route: 048
     Dates: start: 20160420
  10. D-VITAMIN [Concomitant]
     Indication: Osteoporosis
     Dosage: UNK
     Route: 048
     Dates: start: 20190824
  11. SULFAMETHOXAZOLE\TRIMETHOPRIM [Concomitant]
     Active Substance: SULFAMETHOXAZOLE\TRIMETHOPRIM
     Indication: Antibiotic prophylaxis
     Dosage: UNK
     Route: 048
     Dates: start: 20161030

REACTIONS (2)
  - Drug interaction [Recovered/Resolved]
  - Blood creatine phosphokinase increased [Recovered/Resolved]

NARRATIVE: CASE EVENT DATE: 20190917
